FAERS Safety Report 20740435 (Version 1)
Quarter: 2022Q2

REPORT INFORMATION
  Report Type: Spontaneous
  Country: CN (occurrence: CN)
  Receive Date: 20220422
  Receipt Date: 20220422
  Transmission Date: 20220721
  Serious: Yes (Other)
  Sender: FDA-Public Use
  Company Number: CN-PFIZER INC-202200585167

PATIENT
  Age: 21 Month
  Sex: Male
  Weight: 13 kg

DRUGS (2)
  1. SOLU-MEDROL [Suspect]
     Active Substance: METHYLPREDNISOLONE SODIUM SUCCINATE
     Indication: Dyspnoea
     Dosage: 150 MG, SINGLE, 10%GS 250ML+ METHYLPREDNISOLONE SODIUM SUCCINATE 150MG IVGTT ST
     Route: 041
     Dates: start: 20220410, end: 20220410
  2. DEXTROSE [Concomitant]
     Active Substance: DEXTROSE
     Indication: Vehicle solution use
     Dosage: 250 ML, SINGLE, 10%GS 250ML+ METHYLPREDNISOLONE SODIUM SUCCINATE 150MG IVGTT ST
     Route: 041
     Dates: start: 20220410, end: 20220410

REACTIONS (3)
  - Off label use [Recovered/Resolved]
  - Overdose [Recovered/Resolved]
  - Muscle twitching [Recovered/Resolved]

NARRATIVE: CASE EVENT DATE: 20220410
